FAERS Safety Report 9102837 (Version 1)
Quarter: 2013Q1

REPORT INFORMATION
  Report Type: Report from Study
  Country: ES (occurrence: ES)
  Receive Date: 20130219
  Receipt Date: 20130219
  Transmission Date: 20140127
  Serious: Yes (Death)
  Sender: FDA-Public Use
  Company Number: ES-BAYER-2013-021250

PATIENT
  Sex: Male

DRUGS (2)
  1. ADIRO 100 MG [Suspect]
     Indication: MYOCARDIAL ISCHAEMIA
     Dosage: UNK
     Dates: start: 2012, end: 20130123
  2. PLAVIX [Interacting]
     Indication: MYOCARDIAL ISCHAEMIA
     Route: 048
     Dates: start: 2012, end: 20130123

REACTIONS (1)
  - Cerebral haemorrhage [Fatal]
